FAERS Safety Report 19031105 (Version 2)
Quarter: 2021Q1

REPORT INFORMATION
  Report Type: Spontaneous
  Country: FR (occurrence: FR)
  Receive Date: 20210319
  Receipt Date: 20210326
  Transmission Date: 20210420
  Serious: Yes (Hospitalization)
  Sender: FDA-Public Use
  Company Number: FR-MYLANLABS-2021M1016623

PATIENT
  Age: 59 Year
  Sex: Male

DRUGS (7)
  1. IRINOTECAN [Concomitant]
     Active Substance: IRINOTECAN
     Indication: COLORECTAL CANCER METASTATIC
     Dosage: MONOTHERAPY
     Route: 065
     Dates: start: 20171206, end: 20180206
  2. BEVACIZUMAB. [Suspect]
     Active Substance: BEVACIZUMAB
     Indication: COLORECTAL CANCER METASTATIC
     Dosage: 7.5 MILLIGRAM/KILOGRAM RECEIVED 4 CYCLES
     Route: 065
     Dates: start: 20170827, end: 20171025
  3. RALTITREXED [Suspect]
     Active Substance: RALTITREXED
     Indication: COLORECTAL CANCER METASTATIC
     Dosage: 3 MILLIGRAM/SQ. METER RECEIVED CONCOMITANT WITH BEVACIZUMAB THERAPY
     Route: 042
     Dates: start: 20170827, end: 20171206
  4. RALTITREXED [Suspect]
     Active Substance: RALTITREXED
     Dosage: 3 MILLIGRAM/SQ. METER EVERY THREE WEEKS
     Route: 042
     Dates: start: 20180206
  5. OXALIPLATIN. [Concomitant]
     Active Substance: OXALIPLATIN
     Indication: COLORECTAL CANCER METASTATIC
     Dosage: 85 MILLIGRAM/SQ. METER
     Route: 042
     Dates: start: 20170827, end: 20171206
  6. OXALIPLATIN MYLAN [Suspect]
     Active Substance: OXALIPLATIN
     Indication: COLORECTAL CANCER METASTATIC
     Dosage: 130 MILLIGRAM/SQ. METER HEPATIC ARTERIAL INFUSION; EVERY THREE WEEKS
     Dates: start: 20180206
  7. TIPIRACIL;TRIFLURIDINE [Suspect]
     Active Substance: TIPIRACIL HYDROCHLORIDE\TRIFLURIDINE
     Indication: COLORECTAL CANCER METASTATIC
     Dosage: UNK
     Route: 065
     Dates: start: 20181005

REACTIONS (2)
  - Adrenal insufficiency [Recovered/Resolved]
  - Septic shock [Recovered/Resolved]

NARRATIVE: CASE EVENT DATE: 201711
